FAERS Safety Report 7714952-5 (Version None)
Quarter: 2011Q3

REPORT INFORMATION
  Report Type: 
  Country: None (occurrence: None)
  Receive Date: 20110822
  Receipt Date: 20110809
  Transmission Date: 20111222
  Serious: Yes (Other)
  Sender: FDA-Public Use
  Company Number: AUR-APL-2011-04663

PATIENT
  Age: 85 Year
  Sex: Female
  Weight: 47.62 kg

DRUGS (5)
  1. ALBUTEROL [Concomitant]
  2. GLYBURIDE [Suspect]
     Indication: BLOOD GLUCOSE INCREASED
     Dates: end: 20100101
  3. LISINOPRIL [Concomitant]
  4. LIPITOR [Suspect]
     Indication: BLOOD CHOLESTEROL INCREASED
     Dosage: 20 MG (20 MG,1 IN 1 D),ORAL
     Route: 048
     Dates: start: 19980101
  5. FAMOTIDINE [Concomitant]

REACTIONS (2)
  - BLOOD GLUCOSE FLUCTUATION [None]
  - WEIGHT FLUCTUATION [None]
